FAERS Safety Report 6211515-8 (Version None)
Quarter: 2009Q2

REPORT INFORMATION
  Report Type: 
  Country: None (occurrence: None)
  Receive Date: 20090528
  Receipt Date: 20090515
  Transmission Date: 20091009
  Serious: Yes (Hospitalization, Other)
  Sender: FDA-Public Use
  Company Number: 2009AP000923

PATIENT
  Age: 37 Year
  Sex: Male

DRUGS (5)
  1. CARBAMAZEPINE [Suspect]
     Dosage: 1000 MG; QD
  2. LITHIUM CARBONATE [Concomitant]
  3. CLONAZEPAM [Concomitant]
  4. OLANZAPINE [Concomitant]
  5. VALPROATE SODIUM [Concomitant]

REACTIONS (6)
  - ANAEMIA [None]
  - APLASIA PURE RED CELL [None]
  - BLOOD CHOLESTEROL INCREASED [None]
  - BLOOD TRIGLYCERIDES INCREASED [None]
  - GAMMA-GLUTAMYLTRANSFERASE INCREASED [None]
  - OVERWEIGHT [None]
